FAERS Safety Report 21018892 (Version 1)
Quarter: 2022Q2

REPORT INFORMATION
  Report Type: Spontaneous
  Country: CN (occurrence: CN)
  Receive Date: 20220628
  Receipt Date: 20220628
  Transmission Date: 20220721
  Serious: Yes (Hospitalization)
  Sender: FDA-Public Use
  Company Number: CN-ELI_LILLY_AND_COMPANY-CN202206007646

PATIENT
  Age: 69 Year
  Sex: Male
  Weight: 63 kg

DRUGS (4)
  1. ALIMTA [Suspect]
     Active Substance: PEMETREXED DISODIUM
     Indication: Metastases to pleura
     Dosage: 800 MG, SINGLE (ONE TIME ONE DAY)
     Route: 041
     Dates: start: 20220525, end: 20220525
  2. NEDAPLATIN [Suspect]
     Active Substance: NEDAPLATIN
     Indication: Metastases to pleura
     Dosage: 40 MG, SINGLE (ONE TIME ONE DAY)
     Route: 041
     Dates: start: 20220525, end: 20220528
  3. SODIUM CHLORIDE [Concomitant]
     Active Substance: SODIUM CHLORIDE
     Indication: Medication dilution
     Dosage: 100 ML, SINGLE (ONE TIME ONE DAY)
     Route: 041
     Dates: start: 20220525, end: 20220525
  4. SODIUM CHLORIDE [Concomitant]
     Active Substance: SODIUM CHLORIDE
     Dosage: 100 ML, SINGLE (ONE TIME ONE DAY)
     Route: 041
     Dates: start: 20220525, end: 20220528

REACTIONS (2)
  - Coma [Not Recovered/Not Resolved]
  - Myelosuppression [Not Recovered/Not Resolved]

NARRATIVE: CASE EVENT DATE: 20220603
